FAERS Safety Report 22258073 (Version 1)
Quarter: 2023Q2

REPORT INFORMATION
  Report Type: Spontaneous
  Country: US (occurrence: None)
  Receive Date: 20230427
  Receipt Date: 20230427
  Transmission Date: 20230722
  Serious: Yes (Other)
  Sender: FDA-Public Use
  Company Number: US-ROCHE-3292935

PATIENT
  Sex: Female

DRUGS (1)
  1. OCREVUS [Suspect]
     Active Substance: OCRELIZUMAB
     Indication: Secondary progressive multiple sclerosis
     Route: 065
     Dates: start: 202009

REACTIONS (6)
  - Balance disorder [Unknown]
  - Fatigue [Unknown]
  - Disease progression [Unknown]
  - Fall [Unknown]
  - Nephrolithiasis [Unknown]
  - Cystitis [Unknown]
